FAERS Safety Report 21343638 (Version 1)
Quarter: 2022Q3

REPORT INFORMATION
  Report Type: Spontaneous
  Country: US (occurrence: US)
  Receive Date: 20220916
  Receipt Date: 20220916
  Transmission Date: 20221027
  Serious: No
  Sender: FDA-Public Use
  Company Number: US-PFIZER INC-202201166129

PATIENT
  Age: 66 Year
  Sex: Female
  Weight: 48.53 kg

DRUGS (1)
  1. PAXLOVID [Suspect]
     Active Substance: NIRMATRELVIR\RITONAVIR
     Indication: COVID-19 treatment
     Dosage: UNK, 2X/DAY(TAKE 1 NIRMATRELVIR AND 1 RITONAVIR TABLETS TOGETHER BY MOUTH TWICE A DAY FOR 5 DAYS)
     Dates: start: 20220909

REACTIONS (6)
  - Pallor [Unknown]
  - Fatigue [Unknown]
  - Abdominal pain [Unknown]
  - Weight decreased [Unknown]
  - Intentional dose omission [Unknown]
  - Illness [Unknown]
